FAERS Safety Report 18447984 (Version 2)
Quarter: 2020Q4

REPORT INFORMATION
  Report Type: Report from Study
  Country: CA (occurrence: CA)
  Receive Date: 20201030
  Receipt Date: 20201120
  Transmission Date: 20210114
  Serious: Yes (Hospitalization)
  Sender: FDA-Public Use
  Company Number: CA-JNJFOC-20201022025

PATIENT
  Age: 23 Year
  Sex: Female
  Weight: 82 kg

DRUGS (1)
  1. REMICADE [Suspect]
     Active Substance: INFLIXIMAB
     Indication: COLITIS ULCERATIVE
     Dosage: FIRST AND SECOND DOSE WERE SPACED ONLY 1 WEEK APART, APPROVED REMICADE INFUSION FOR TODAY (12-NOV-20
     Route: 042
     Dates: start: 20201001

REACTIONS (4)
  - Wound [Recovering/Resolving]
  - Product use issue [Unknown]
  - Off label use [Unknown]
  - Colectomy [Recovering/Resolving]

NARRATIVE: CASE EVENT DATE: 202010
